FAERS Safety Report 18263597 (Version 11)
Quarter: 2021Q4

REPORT INFORMATION
  Report Type: Spontaneous
  Country: ES (occurrence: ES)
  Receive Date: 20200914
  Receipt Date: 20211122
  Transmission Date: 20220303
  Serious: Yes (Death, Life-Threatening, Hospitalization, Other)
  Sender: FDA-Public Use
  Company Number: ES-002147023-NVSC2020ES230163

PATIENT
  Age: 57 Year
  Sex: Female

DRUGS (19)
  1. IMATINIB [Interacting]
     Active Substance: IMATINIB
     Indication: Chronic myeloid leukaemia
     Dosage: 300 MILLIGRAM, QD
     Route: 065
  2. IMATINIB [Interacting]
     Active Substance: IMATINIB
     Indication: Lung adenocarcinoma
     Dosage: 400 MILLIGRAM, QD
     Route: 048
     Dates: start: 20170413, end: 20170510
  3. IMATINIB [Interacting]
     Active Substance: IMATINIB
     Indication: Chronic myeloid leukaemia recurrent
     Dosage: 600 MG, UNKNOWN
     Route: 065
  4. IMATINIB [Interacting]
     Active Substance: IMATINIB
     Dosage: UNK UNK, QD (WHICH SHOWED A COMPLETED MOLECULAR RESPONSE)
     Route: 065
  5. IMATINIB [Interacting]
     Active Substance: IMATINIB
     Dosage: 400 MILLIGRAM, QD
     Route: 065
  6. IMATINIB [Interacting]
     Active Substance: IMATINIB
     Dosage: 600 MILLIGRAM, QD
     Route: 065
  7. IMATINIB [Interacting]
     Active Substance: IMATINIB
     Dosage: UNK
  8. IMATINIB [Interacting]
     Active Substance: IMATINIB
     Indication: Chronic myeloid leukaemia
     Dosage: 400 MILLIGRAM, QD
     Route: 048
     Dates: start: 20170413, end: 20170510
  9. IMATINIB [Interacting]
     Active Substance: IMATINIB
     Dosage: 300 MILLIGRAM, QD
  10. ERLOTINIB [Suspect]
     Active Substance: ERLOTINIB
     Indication: Chronic myeloid leukaemia
     Dosage: 100 MG, UNKNOWN
     Route: 065
  11. GEFITINIB [Interacting]
     Active Substance: GEFITINIB
     Indication: Lung adenocarcinoma
     Dosage: 250 MILLIGRAM, QD
     Route: 048
     Dates: start: 201610, end: 20170608
  12. GEFITINIB [Interacting]
     Active Substance: GEFITINIB
     Indication: Chronic myeloid leukaemia
     Dosage: UNK
     Route: 065
     Dates: start: 201610, end: 20170608
  13. GEFITINIB [Interacting]
     Active Substance: GEFITINIB
     Indication: Lung adenocarcinoma stage IV
     Dosage: 250 MILLIGRAM, QD
     Route: 048
  14. GEFITINIB [Interacting]
     Active Substance: GEFITINIB
     Dosage: UNK
  15. INSULIN GLARGINE [Concomitant]
     Active Substance: INSULIN GLARGINE
     Indication: Product used for unknown indication
     Dosage: 28 INTERNATIONAL UNIT, QD
     Route: 065
  16. REPAGLINIDE [Concomitant]
     Active Substance: REPAGLINIDE
     Indication: Product used for unknown indication
     Dosage: 1 DOSAGE FORM, Q8H
  17. REPAGLINIDE [Concomitant]
     Active Substance: REPAGLINIDE
     Dosage: UNK, Q8H
  18. BEMIPARIN [Concomitant]
     Active Substance: BEMIPARIN
     Indication: Product used for unknown indication
     Dosage: 5000 INTERNATIONAL UNIT, QD
     Route: 065
  19. BISOPROLOL [Concomitant]
     Active Substance: BISOPROLOL
     Indication: Product used for unknown indication
     Dosage: 2.5 MILLIGRAM, QD
     Route: 065

REACTIONS (11)
  - Gastrointestinal toxicity [Fatal]
  - Asthenia [Fatal]
  - Drug interaction [Recovering/Resolving]
  - Pancreatic toxicity [Recovering/Resolving]
  - Pancreatitis acute [Recovered/Resolved]
  - Malignant neoplasm progression [Unknown]
  - Diarrhoea [Unknown]
  - Vomiting [Unknown]
  - Nausea [Unknown]
  - Off label use [Unknown]
  - Product use in unapproved indication [Unknown]

NARRATIVE: CASE EVENT DATE: 20170608
